FAERS Safety Report 13635782 (Version 1)
Quarter: 2017Q2

REPORT INFORMATION
  Report Type: Spontaneous
  Country: US (occurrence: US)
  Receive Date: 20170531
  Receipt Date: 20170531
  Transmission Date: 20170830
  Serious: No
  Sender: FDA-Public Use
  Company Number: US-ASTELLAS-1746996

PATIENT
  Sex: Female

DRUGS (1)
  1. TARCEVA [Suspect]
     Active Substance: ERLOTINIB HYDROCHLORIDE
     Indication: LUNG NEOPLASM MALIGNANT
     Dosage: USE AS DIRECTED BY PHYSICIAN
     Route: 048

REACTIONS (8)
  - Dysgeusia [Unknown]
  - Lip blister [Unknown]
  - Skin exfoliation [Unknown]
  - Bone pain [Unknown]
  - Scab [Unknown]
  - Drug ineffective [Unknown]
  - Diarrhoea [Unknown]
  - Chills [Unknown]
